FAERS Safety Report 6727571-4 (Version None)
Quarter: 2010Q2

REPORT INFORMATION
  Report Type: 
  Country: None (occurrence: None)
  Receive Date: 20100517
  Receipt Date: 20100513
  Transmission Date: 20101027
  Serious: Yes (Death, Other)
  Sender: FDA-Public Use
  Company Number: PHEH2010US02091

PATIENT
  Sex: Male

DRUGS (8)
  1. AFINITOR [Suspect]
     Indication: RENAL CELL CARCINOMA
     Dosage: UNK
     Dates: start: 20091001
  2. PROTONIX [Concomitant]
  3. NEURONTIN [Concomitant]
  4. LEVOTHYROXINE SODIUM [Concomitant]
  5. VITAMIN B-12 [Concomitant]
  6. JANUVIA [Concomitant]
     Dosage: UNK
  7. LOVENOX [Concomitant]
     Dosage: UNK
     Dates: end: 20090301
  8. GLIPIZIDE [Concomitant]

REACTIONS (3)
  - DEATH [None]
  - PYREXIA [None]
  - SEPSIS [None]
